FAERS Safety Report 15262130 (Version 1)
Quarter: 2018Q3

REPORT INFORMATION
  Report Type: Spontaneous
  Country: FR (occurrence: FR)
  Receive Date: 20180809
  Receipt Date: 20180809
  Transmission Date: 20181010
  Serious: Yes (Life-Threatening, Hospitalization)
  Sender: FDA-Public Use
  Company Number: PHHY2018FR069323

PATIENT
  Age: 3 Year
  Sex: Female
  Weight: 13 kg

DRUGS (1)
  1. TEGRETOL [Suspect]
     Active Substance: CARBAMAZEPINE
     Indication: ACCIDENTAL EXPOSURE TO PRODUCT
     Dosage: 600 MG, TOTAL
     Route: 048
     Dates: start: 20180602

REACTIONS (5)
  - Hypotonia [Recovered/Resolved]
  - Somnolence [Recovered/Resolved]
  - Apnoea [Recovered/Resolved]
  - Accidental overdose [Recovered/Resolved]
  - Accidental exposure to product [Recovered/Resolved]

NARRATIVE: CASE EVENT DATE: 20180602
